FAERS Safety Report 5345671-0 (Version None)
Quarter: 2007Q2

REPORT INFORMATION
  Report Type: 
  Country: None (occurrence: None)
  Receive Date: 20070605
  Receipt Date: 20070523
  Transmission Date: 20071010
  Serious: Yes (Hospitalization)
  Sender: FDA-Public Use
  Company Number: US-NOVOPROD-263937

PATIENT
  Age: 61 Year
  Sex: Female

DRUGS (8)
  1. NOVOLOG [Suspect]
     Indication: DIABETES MELLITUS INSULIN-DEPENDENT
     Dosage: UNK, UNK
     Route: 058
  2. NEURONTIN [Concomitant]
     Indication: ILL-DEFINED DISORDER
     Dosage: 500 MG, TID
     Route: 048
  3. LUMIGAN [Concomitant]
     Indication: GLAUCOMA
  4. ALPHAGAN                           /01341102/ [Concomitant]
     Indication: GLAUCOMA
  5. ACTONEL [Concomitant]
     Indication: ILL-DEFINED DISORDER
  6. ZOCOR [Concomitant]
     Indication: ILL-DEFINED DISORDER
  7. ASPIRIN [Concomitant]
     Indication: ILL-DEFINED DISORDER
  8. LISINOPRIL [Concomitant]
     Indication: ILL-DEFINED DISORDER

REACTIONS (6)
  - ASTHENIA [None]
  - BLOOD GLUCOSE DECREASED [None]
  - FALL [None]
  - INCOHERENT [None]
  - LOWER LIMB FRACTURE [None]
  - MALAISE [None]
